FAERS Safety Report 20808986 (Version 1)
Quarter: 2022Q2

REPORT INFORMATION
  Report Type: Spontaneous
  Country: US (occurrence: None)
  Receive Date: 20220509
  Receipt Date: 20220509
  Transmission Date: 20220721
  Serious: Yes (Other)
  Sender: FDA-Public Use
  Company Number: None

PATIENT
  Age: 48 Year
  Sex: Female
  Weight: 98.1 kg

DRUGS (9)
  1. BANOPHEN [Suspect]
     Active Substance: DIPHENHYDRAMINE HYDROCHLORIDE
     Indication: COVID-19
     Dosage: OTHER QUANTITY : 2 CAPSULE(S);?FREQUENCY : AT BEDTIME;?
     Route: 048
     Dates: start: 20220314, end: 20220331
  2. inhalers albuterol [Concomitant]
  3. MAGNESIUM [Concomitant]
     Active Substance: MAGNESIUM
  4. MELATONIN [Concomitant]
     Active Substance: MELATONIN
  5. VITAMIN D NOS [Concomitant]
     Active Substance: VITAMIN D NOS
  6. DIPHENHYDRAMINE [Concomitant]
     Active Substance: DIPHENHYDRAMINE
  7. ZINC [Concomitant]
     Active Substance: ZINC
  8. BIOTIN [Concomitant]
     Active Substance: BIOTIN
  9. b 6 [Concomitant]

REACTIONS (7)
  - Migraine [None]
  - Middle insomnia [None]
  - Product substitution issue [None]
  - Pruritus [None]
  - Skin ulcer [None]
  - Pain [None]
  - Feeling abnormal [None]

NARRATIVE: CASE EVENT DATE: 20220321
